FAERS Safety Report 7444630-1 (Version None)
Quarter: 2011Q2

REPORT INFORMATION
  Report Type: 
  Country: None (occurrence: None)
  Receive Date: 20110429
  Receipt Date: 20110427
  Transmission Date: 20111010
  Serious: No
  Sender: FDA-Public Use
  Company Number: US-PFIZER INC-2011079567

PATIENT
  Sex: Female
  Weight: 63.492 kg

DRUGS (2)
  1. ADVIL PM [Suspect]
     Indication: OSTEOARTHRITIS
     Dosage: UNK
     Route: 048
     Dates: start: 20110410, end: 20110410
  2. VITAMINS [Concomitant]
     Dosage: UNK

REACTIONS (4)
  - SWELLING FACE [None]
  - FLUSHING [None]
  - ERYTHEMA [None]
  - INSOMNIA [None]
